FAERS Safety Report 10410012 (Version 1)
Quarter: 2014Q2

REPORT INFORMATION
  Report Type: Spontaneous
  Country: US (occurrence: None)
  Receive Date: 20140530
  Receipt Date: 20140530
  Transmission Date: 20141212
  Serious: No
  Sender: FDA-Public Use
  Company Number: 227213LEO

PATIENT
  Sex: Male

DRUGS (1)
  1. PICATO [Suspect]
     Indication: ACTINIC KERATOSIS
     Dates: start: 20140416, end: 20140417

REACTIONS (6)
  - Application site vesicles [None]
  - Application site exfoliation [None]
  - Application site pruritus [None]
  - Application site pain [None]
  - Incorrect dose administered [None]
  - Incorrect drug administration duration [None]
